FAERS Safety Report 13930759 (Version 2)
Quarter: 2017Q4

REPORT INFORMATION
  Report Type: Report from Study
  Country: US (occurrence: US)
  Receive Date: 20170901
  Receipt Date: 20171004
  Transmission Date: 20180320
  Serious: Yes (Hospitalization, Other)
  Sender: FDA-Public Use
  Company Number: US-SHIRE-US201720289

PATIENT

DRUGS (8)
  1. VINCRISTINE [Suspect]
     Active Substance: VINCRISTINE
     Indication: B PRECURSOR TYPE ACUTE LEUKAEMIA
     Dosage: 2 MG, UNK
     Route: 042
     Dates: start: 20170307, end: 20170712
  2. ASPARAGINASE [Suspect]
     Active Substance: ASPARAGINASE
     Indication: B PRECURSOR TYPE ACUTE LEUKAEMIA
     Dosage: 57,000 UNITS
     Route: 030
     Dates: start: 20170307, end: 20170717
  3. ASPARAGINASE [Suspect]
     Active Substance: ASPARAGINASE
     Dosage: 57,000 UNITS
     Route: 030
     Dates: start: 20170818, end: 20170818
  4. RUXOLITINIB [Suspect]
     Active Substance: RUXOLITINIB
     Indication: B PRECURSOR TYPE ACUTE LEUKAEMIA
     Dosage: 45 MG, 2X/DAY:BID
     Route: 048
     Dates: start: 20170220, end: 20170713
  5. RUXOLITINIB [Suspect]
     Active Substance: RUXOLITINIB
     Dosage: 45 MG, 2X/DAY:BID
     Route: 048
     Dates: start: 20170813, end: 20170813
  6. PEGASPARGASE [Suspect]
     Active Substance: PEGASPARGASE
     Indication: B PRECURSOR TYPE ACUTE LEUKAEMIA
     Dosage: STUDY DRUG NOT ADMINISTERED
     Route: 065
  7. VINCRISTINE [Suspect]
     Active Substance: VINCRISTINE
     Dosage: 2 MG, UNK
     Route: 042
     Dates: start: 20170816, end: 20170816
  8. METHOTREXATE. [Suspect]
     Active Substance: METHOTREXATE
     Indication: ACUTE LYMPHOCYTIC LEUKAEMIA
     Dosage: 15 MG, UNK
     Route: 037
     Dates: start: 2017

REACTIONS (3)
  - Febrile neutropenia [Recovering/Resolving]
  - Pain in extremity [Recovering/Resolving]
  - Febrile neutropenia [Recovering/Resolving]

NARRATIVE: CASE EVENT DATE: 20170724
